FAERS Safety Report 18221145 (Version 2)
Quarter: 2020Q3

REPORT INFORMATION
  Report Type: Spontaneous
  Country: GB (occurrence: GB)
  Receive Date: 20200902
  Receipt Date: 20200911
  Transmission Date: 20201103
  Serious: Yes (Other)
  Sender: FDA-Public Use
  Company Number: GB-AUROBINDO-AUR-APL-2020-045379

PATIENT
  Age: 45 Year
  Sex: Male

DRUGS (1)
  1. QUETIAPINE FILM?COATED TABLET [Suspect]
     Active Substance: QUETIAPINE
     Indication: PRODUCT USED FOR UNKNOWN INDICATION
     Dosage: 300 MILLIGRAM, ONCE A DAY,NIGHT
     Route: 048

REACTIONS (12)
  - Memory impairment [Unknown]
  - Withdrawal syndrome [Unknown]
  - Altered state of consciousness [Unknown]
  - Dizziness [Unknown]
  - Asthenia [Unknown]
  - Balance disorder [Unknown]
  - Product dispensing error [Unknown]
  - Disorientation [Unknown]
  - Anxiety [Unknown]
  - Dysarthria [Unknown]
  - Loss of consciousness [Unknown]
  - Fatigue [Unknown]
